FAERS Safety Report 6381036-0 (Version None)
Quarter: 2009Q3

REPORT INFORMATION
  Report Type: 
  Country: None (occurrence: None)
  Receive Date: 20090929
  Receipt Date: 20090924
  Transmission Date: 20100115
  Serious: Yes (Hospitalization, Disabling, Other)
  Sender: FDA-Public Use
  Company Number: US-MERCK-0803USA00280

PATIENT
  Age: 48 Year
  Sex: Female
  Weight: 58 kg

DRUGS (3)
  1. FOSAMAX [Suspect]
     Indication: OSTEOPOROSIS
     Route: 048
     Dates: start: 20000401, end: 20060601
  2. OXYCONTIN [Concomitant]
     Indication: PAIN
     Route: 065
     Dates: start: 20000101
  3. HORMONES (UNSPECIFIED) [Concomitant]
     Indication: HORMONE REPLACEMENT THERAPY
     Route: 065
     Dates: start: 19970101, end: 20020101

REACTIONS (42)
  - ABSCESS JAW [None]
  - ANXIETY [None]
  - ARTHROPATHY [None]
  - BLOOD CHOLESTEROL INCREASED [None]
  - BRONCHITIS [None]
  - CELLULITIS [None]
  - CHRONIC SINUSITIS [None]
  - CLOSTRIDIUM DIFFICILE COLITIS [None]
  - COCCYDYNIA [None]
  - COLONIC POLYP [None]
  - DEHYDRATION [None]
  - DENTAL CARIES [None]
  - DENTAL NECROSIS [None]
  - DEPRESSION [None]
  - DEVICE RELATED INFECTION [None]
  - DIARRHOEA [None]
  - DRY EYE [None]
  - GASTRIC DISORDER [None]
  - GASTRITIS [None]
  - GASTROINTESTINAL DISORDER [None]
  - GASTROOESOPHAGEAL REFLUX DISEASE [None]
  - GRAFT DYSFUNCTION [None]
  - HIATUS HERNIA [None]
  - HYPERTHYROIDISM [None]
  - IMPAIRED HEALING [None]
  - INFLAMMATION [None]
  - INTERCOSTAL NEURALGIA [None]
  - JAW DISORDER [None]
  - NASAL DISORDER [None]
  - NASAL SEPTUM DEVIATION [None]
  - NAUSEA [None]
  - OSTEONECROSIS [None]
  - OTITIS MEDIA [None]
  - RECTAL HAEMORRHAGE [None]
  - RESORPTION BONE INCREASED [None]
  - RIB FRACTURE [None]
  - SLEEP APNOEA SYNDROME [None]
  - SPINAL CORD DISORDER [None]
  - TEMPOROMANDIBULAR JOINT SYNDROME [None]
  - TOOTH LOSS [None]
  - TRISMUS [None]
  - VOMITING [None]
